FAERS Safety Report 7107241-3 (Version None)
Quarter: 2010Q4

REPORT INFORMATION
  Report Type: 
  Country: None (occurrence: None)
  Receive Date: 20101116
  Receipt Date: 20100921
  Transmission Date: 20110411
  Serious: No
  Sender: FDA-Public Use
  Company Number: US-ABBOTT-10P-163-0672267-00

PATIENT
  Sex: Male
  Weight: 113.5 kg

DRUGS (5)
  1. SIMCOR [Suspect]
     Indication: BLOOD CHOLESTEROL INCREASED
     Dosage: 500/40MG AT BEDTIME
     Dates: start: 20100920
  2. SIMCOR [Suspect]
     Indication: ARTERIOSCLEROSIS
  3. NOT REPORTED MEDICATION [Concomitant]
     Indication: DIABETES MELLITUS
  4. ASPIRIN [Concomitant]
     Indication: PRODUCT USED FOR UNKNOWN INDICATION
     Dosage: PRIOR TO TAKING SIMCOR
  5. UNKNOWN MEDICATION [Concomitant]
     Indication: HYPERTENSION

REACTIONS (3)
  - DIZZINESS [None]
  - HEADACHE [None]
  - SOMNOLENCE [None]
